FAERS Safety Report 10755530 (Version 1)
Quarter: 2015Q1

REPORT INFORMATION
  Report Type: Spontaneous
  Country: US (occurrence: None)
  Receive Date: 20150123
  Receipt Date: 20150123
  Transmission Date: 20150721
  Serious: No
  Sender: FDA-Public Use
  Company Number: 2014TUS008505

PATIENT
  Age: 46 Year
  Sex: Female
  Weight: 61.2 kg

DRUGS (5)
  1. TYLENOL/000200001/ (PARACETAMOL) [Concomitant]
  2. ZYRTEC [Concomitant]
     Active Substance: CETIRIZINE HYDROCHLORIDE
  3. UNKNOWN INHALER (ALL OTHER THERAPEUTIC PRODUCTS) [Concomitant]
  4. PREDNISONE. [Concomitant]
     Active Substance: PREDNISONE
  5. ENTYVIO [Suspect]
     Active Substance: VEDOLIZUMAB
     Indication: COLITIS ULCERATIVE
     Dosage: 300 MG, FIRST DOSE
     Route: 042
     Dates: start: 20140829, end: 20140829

REACTIONS (2)
  - Diarrhoea [None]
  - Pruritus [None]

NARRATIVE: CASE EVENT DATE: 20140830
